FAERS Safety Report 5625331-9 (Version None)
Quarter: 2008Q1

REPORT INFORMATION
  Report Type: 
  Country: None (occurrence: None)
  Receive Date: 20080211
  Receipt Date: 20080130
  Transmission Date: 20080703
  Serious: Yes (Other)
  Sender: FDA-Public Use
  Company Number: 2007S1012840

PATIENT
  Age: 13 Year
  Sex: Female

DRUGS (2)
  1. AMNESTEEM [Suspect]
     Dosage: 40 MG;EVERY OTHER DAY;ORAL; 80 MG;EVERY OTHER DAY;ORAL
     Route: 048
     Dates: start: 20070312, end: 20070612
  2. AMNESTEEM [Suspect]
     Dosage: 40 MG;EVERY OTHER DAY;ORAL; 80 MG;EVERY OTHER DAY;ORAL
     Route: 048
     Dates: start: 20070312, end: 20070612

REACTIONS (3)
  - DRUG EXPOSURE DURING PREGNANCY [None]
  - PREGNANCY [None]
  - TREATMENT NONCOMPLIANCE [None]
